FAERS Safety Report 4765409-5 (Version None)
Quarter: 2005Q3

REPORT INFORMATION
  Report Type: 
  Country: None (occurrence: None)
  Receive Date: 20050908
  Receipt Date: 20050908
  Transmission Date: 20060218
  Serious: Yes (Death)
  Sender: FDA-Public Use
  Company Number: None

PATIENT
  Sex: Female
  Weight: 54.4316 kg

DRUGS (4)
  1. OXALIPLATIN 130 MG/M2 [Suspect]
     Indication: METASTATIC NEOPLASM
     Dosage: 195 MG IV DAY 1 OF CYCLE
     Route: 042
     Dates: start: 20050725
  2. OXALIPLATIN 130 MG/M2 [Suspect]
     Indication: METASTATIC NEOPLASM
     Dosage: 195 MG IV DAY 1 OF CYCLE
     Route: 042
     Dates: start: 20050815
  3. XELODA [Suspect]
     Indication: METASTATIC NEOPLASM
     Dosage: 1300 MG PO BID DAYS 2-15
     Route: 048
     Dates: start: 20050726, end: 20050809
  4. XELODA [Suspect]
     Indication: METASTATIC NEOPLASM
     Dosage: 1300 MG PO BID DAYS 2-15
     Route: 048
     Dates: start: 20050816, end: 20050829

REACTIONS (1)
  - CARDIAC DISORDER [None]
